FAERS Safety Report 8317938-5 (Version None)
Quarter: 2012Q2

REPORT INFORMATION
  Report Type: 
  Country: None (occurrence: None)
  Receive Date: 20120427
  Receipt Date: 20110628
  Transmission Date: 20120825
  Serious: Yes (Other)
  Sender: FDA-Public Use
  Company Number: FR-CELGENEUS-056-50794-11123372

PATIENT

DRUGS (1)
  1. VIDAZA [Suspect]
     Route: 065

REACTIONS (7)
  - FATIGUE [None]
  - DISEASE PROGRESSION [None]
  - SKIN SENSITISATION [None]
  - NO THERAPEUTIC RESPONSE [None]
  - TRANSFUSION [None]
  - DYSPEPSIA [None]
  - PANCYTOPENIA [None]
